FAERS Safety Report 17166246 (Version 8)
Quarter: 2020Q2

REPORT INFORMATION
  Report Type: Report from Study
  Country: PL (occurrence: PL)
  Receive Date: 20191217
  Receipt Date: 20200522
  Transmission Date: 20200713
  Serious: Yes (Hospitalization, Other)
  Sender: FDA-Public Use
  Company Number: NVSC2019PL063245

PATIENT
  Age: 56 Year
  Sex: Female
  Weight: 78.4 kg

DRUGS (10)
  1. BACLOFEN. [Concomitant]
     Active Substance: BACLOFEN
     Indication: LIMB DEFORMITY
     Dosage: UNK
     Route: 065
     Dates: start: 20191003
  2. OFATUMUMAB [Suspect]
     Active Substance: OFATUMUMAB
     Indication: MULTIPLE SCLEROSIS RELAPSE
     Dosage: 20 MG, QMO
     Route: 058
     Dates: start: 20190909
  3. BILASTINUM [Concomitant]
     Indication: PROPHYLAXIS
     Dosage: UNK
     Route: 065
     Dates: start: 20191211, end: 20191226
  4. METHOCARBAMOL. [Concomitant]
     Active Substance: METHOCARBAMOL
     Indication: LIMB DEFORMITY
     Dosage: UNK
     Route: 065
     Dates: start: 20191003
  5. PREGABALINUM [Concomitant]
     Indication: NEURALGIA
     Dosage: UNK
     Route: 065
     Dates: start: 20190501
  6. PRESTARIUM [Concomitant]
     Active Substance: PERINDOPRIL
     Indication: HYPERTENSION
     Dosage: UNK
     Route: 065
     Dates: start: 20050101
  7. ELICEA [Concomitant]
     Active Substance: ESCITALOPRAM OXALATE
     Indication: AFFECTIVE DISORDER
     Dosage: UNK
     Route: 065
     Dates: start: 20110101
  8. DEVIKAP [Concomitant]
     Indication: PROPHYLAXIS
     Dosage: UNK
     Route: 065
     Dates: start: 20120101
  9. OFATUMUMAB [Suspect]
     Active Substance: OFATUMUMAB
     Indication: MULTIPLE SCLEROSIS RELAPSE
     Dosage: 20 MG, Q4W
     Route: 058
     Dates: start: 20190915
  10. NEUROVIT [Concomitant]
     Indication: PROPHYLAXIS
     Dosage: UNK
     Route: 065
     Dates: start: 20150101

REACTIONS (1)
  - Dermatitis allergic [Recovered/Resolved]

NARRATIVE: CASE EVENT DATE: 20191206
